FAERS Safety Report 4413028-2 (Version None)
Quarter: 2004Q3

REPORT INFORMATION
  Report Type: 
  Country: None (occurrence: None)
  Receive Date: 20040730
  Receipt Date: 20040730
  Transmission Date: 20050211
  Serious: Yes (Hospitalization)
  Sender: FDA-Public Use
  Company Number: None

PATIENT
  Sex: Male

DRUGS (15)
  1. DILTIAZEM [Suspect]
     Dosage: 1 DAILY
  2. TERAZOSIN 10 MG Q HS [Suspect]
     Dosage: 1  QHS
  3. DOXEPIN 20 MG Q HS PRN [Suspect]
     Dosage: 1 QHS
  4. SERTRALINE 150 MG QD [Suspect]
     Dosage: 1 QD
  5. HYDROCHLOROTHIAZIDE 125 MG DAILY [Suspect]
     Dosage: 1 TABLET DAILY
  6. LISINOPRIL 5 MG DAILY [Suspect]
     Dosage: 1 DAILY
  7. ACETAMINOPHEN [Concomitant]
  8. ALBUTEROL/IPRATROPIUM INH [Concomitant]
  9. CLOTRIMAZOLE 1% CREAM [Concomitant]
  10. NAPHAZOLINE 0.025/PHENIRAMINE 0.3% [Concomitant]
  11. SIMVASTATIN [Concomitant]
  12. SODIUM CHLORIDE INJ [Concomitant]
  13. TEMAZEPAM [Concomitant]
  14. COUMADIN [Concomitant]
  15. DIGOXIN [Concomitant]

REACTIONS (3)
  - DEHYDRATION [None]
  - HYPOTENSION [None]
  - SYNCOPE [None]
